FAERS Safety Report 8192709 (Version 3)
Quarter: 2013Q4

REPORT INFORMATION
  Report Type: Spontaneous
  Country: US (occurrence: US)
  Receive Date: 20111021
  Receipt Date: 20131119
  Transmission Date: 20140711
  Serious: Yes (Hospitalization, Other)
  Sender: FDA-Public Use
  Company Number: US-BAYER-2011-095021

PATIENT
  Age: 44 Year
  Sex: Female
  Weight: 77.1 kg

DRUGS (2)
  1. YAZ [Suspect]
     Dosage: UNK
     Dates: start: 20090421, end: 201001
  2. ALEVE [Concomitant]
     Indication: ANALGESIC THERAPY
     Dosage: PRN
     Dates: start: 200909, end: 201001

REACTIONS (6)
  - Cholecystitis chronic [None]
  - Gallbladder disorder [Unknown]
  - Gallbladder pain [None]
  - Anxiety [None]
  - Anhedonia [None]
  - Gallbladder pain [None]
